FAERS Safety Report 17874509 (Version 1)
Quarter: 2020Q2

REPORT INFORMATION
  Report Type: Spontaneous
  Country: US (occurrence: US)
  Receive Date: 20200609
  Receipt Date: 20200609
  Transmission Date: 20200714
  Serious: No
  Sender: FDA-Public Use
  Company Number: US-TEVA-2020-US-1246081

PATIENT

DRUGS (1)
  1. ROPINIROLE. [Suspect]
     Active Substance: ROPINIROLE
     Route: 065

REACTIONS (7)
  - Drug ineffective [Unknown]
  - Product size issue [Unknown]
  - Presyncope [Unknown]
  - Abdominal discomfort [Unknown]
  - Gait disturbance [Unknown]
  - Product formulation issue [Unknown]
  - Dizziness [Unknown]
